FAERS Safety Report 5784497-0 (Version None)
Quarter: 2008Q2

REPORT INFORMATION
  Report Type: 
  Country: None (occurrence: None)
  Receive Date: 20080605
  Receipt Date: 20080408
  Transmission Date: 20081010
  Serious: No
  Sender: FDA-Public Use
  Company Number: A0721531A

PATIENT
  Age: 21 Year
  Weight: 68 kg

DRUGS (1)
  1. ALLI [Suspect]

REACTIONS (5)
  - BRUXISM [None]
  - FALL [None]
  - FOOD CRAVING [None]
  - STRESS [None]
  - TOOTH EROSION [None]
